FAERS Safety Report 4287607-X (Version None)
Quarter: 2004Q1

REPORT INFORMATION
  Report Type: 
  Country: None (occurrence: None)
  Receive Date: 20040205
  Receipt Date: 20040107
  Transmission Date: 20041129
  Serious: Yes (Hospitalization)
  Sender: FDA-Public Use
  Company Number: F01200400026

PATIENT
  Age: 90 Year
  Sex: Female

DRUGS (4)
  1. FONDAPARINUX SODIUM) - SOLUTION- UNIT DOSE: UNKNOWN [Suspect]
     Indication: ORTHOPEDIC PROCEDURE
     Dosage: 2.5 MG
     Route: 058
     Dates: start: 20031208
  2. TENORMIN [Concomitant]
  3. FENOFIBRATE [Concomitant]
  4. LASIX [Concomitant]

REACTIONS (1)
  - DUODENAL ULCER HAEMORRHAGE [None]
